FAERS Safety Report 4298559-0 (Version None)
Quarter: 2004Q1

REPORT INFORMATION
  Report Type: 
  Country: None (occurrence: None)
  Receive Date: 20040126
  Receipt Date: 20031023
  Transmission Date: 20041129
  Serious: No
  Sender: FDA-Public Use
  Company Number: USA031050720

PATIENT
  Age: 12 Year
  Sex: Female
  Weight: 39 kg

DRUGS (1)
  1. STRATTERA [Suspect]
     Indication: ATTENTION DEFICIT/HYPERACTIVITY DISORDER
     Dosage: 50 MG/DAY
     Dates: start: 20030901

REACTIONS (3)
  - ABNORMAL BEHAVIOUR [None]
  - DECREASED APPETITE [None]
  - NAUSEA [None]
